FAERS Safety Report 24928205 (Version 1)
Quarter: 2025Q1

REPORT INFORMATION
  Report Type: Spontaneous
  Country: CA (occurrence: CA)
  Receive Date: 20250205
  Receipt Date: 20250205
  Transmission Date: 20250409
  Serious: Yes (Hospitalization, Other)
  Sender: PFIZER
  Company Number: CA-PFIZER INC-202500023268

PATIENT
  Age: 38 Year
  Sex: Female

DRUGS (2)
  1. CIBINQO [Suspect]
     Active Substance: ABROCITINIB
     Indication: Dermatitis atopic
     Dosage: 200 MG, 1X/DAY
     Route: 048
     Dates: start: 20250124, end: 202501
  2. METHOTREXATE [Concomitant]
     Active Substance: METHOTREXATE
     Dates: end: 20250111

REACTIONS (2)
  - Loss of consciousness [Unknown]
  - Dizziness [Unknown]

NARRATIVE: CASE EVENT DATE: 20250128
